FAERS Safety Report 8423070-2 (Version None)
Quarter: 2012Q2

REPORT INFORMATION
  Report Type: 
  Country: None (occurrence: None)
  Receive Date: 20120608
  Receipt Date: 20120601
  Transmission Date: 20120825
  Serious: Yes (Other)
  Sender: FDA-Public Use
  Company Number: GB-JNJFOC-20120410612

PATIENT
  Sex: Female

DRUGS (2)
  1. SIMPONI [Suspect]
     Route: 058
     Dates: start: 20120302
  2. SIMPONI [Suspect]
     Indication: PRODUCT USED FOR UNKNOWN INDICATION
     Route: 058
     Dates: start: 20120419

REACTIONS (6)
  - LOWER RESPIRATORY TRACT INFECTION [None]
  - INJECTION SITE HAEMATOMA [None]
  - EAR INFECTION [None]
  - HEADACHE [None]
  - CHOLELITHIASIS [None]
  - OROPHARYNGEAL PAIN [None]
